FAERS Safety Report 9506026 (Version 2)
Quarter: 2013Q2

REPORT INFORMATION
  Report Type: Spontaneous
  Country: US (occurrence: None)
  Receive Date: 20130201
  Receipt Date: 20130510
  Transmission Date: 20140414
  Serious: No
  Sender: FDA-Public Use
  Company Number: US-010573

PATIENT
  Age: 69 Year
  Sex: Female
  Weight: 104.33 kg

DRUGS (8)
  1. PICO-SALAX (NOT SPECIFIED) [Suspect]
     Indication: COLONOSCOPY
     Dosage: ONE PACKET ON 17-DEC-2012 AT 6PM AND ONE PACKET ON 18-DEC-2012 AT 2:30 AM ORAL)
     Route: 048
     Dates: start: 20121217, end: 20121218
  2. HYDROCHLOROTHIAZIDE [Concomitant]
  3. LANTUS [Concomitant]
  4. LIPITOR [Concomitant]
  5. GLIPIZIDE XL [Concomitant]
  6. LOTREL [Concomitant]
  7. CALTRATE [Concomitant]
  8. ADDITIVA MULTIVITAMIN ORANGE [Concomitant]

REACTIONS (4)
  - Drug ineffective [None]
  - Diarrhoea [None]
  - Abdominal pain [None]
  - Abdominal distension [None]
